FAERS Safety Report 5735520-0 (Version None)
Quarter: 2008Q2

REPORT INFORMATION
  Report Type: 
  Country: None (occurrence: None)
  Receive Date: 20080508
  Receipt Date: 20071012
  Transmission Date: 20081010
  Serious: Yes (Hospitalization, Other)
  Sender: FDA-Public Use
  Company Number: 2007RR-10715

PATIENT
  Age: 36 Month
  Sex: Male

DRUGS (1)
  1. IBUROFEN [Suspect]
     Indication: EAR PAIN
     Dosage: ORAL
     Route: 048

REACTIONS (8)
  - ATAXIA [None]
  - CONVULSION [None]
  - DIPLOPIA [None]
  - DRUG SCREEN FALSE POSITIVE [None]
  - DRUG TOXICITY [None]
  - HYPOTONIA [None]
  - OVERDOSE [None]
  - VOMITING [None]
